FAERS Safety Report 12742538 (Version 1)
Quarter: 2016Q3

REPORT INFORMATION
  Report Type: Spontaneous
  Country: GB (occurrence: GB)
  Receive Date: 20160914
  Receipt Date: 20160914
  Transmission Date: 20161109
  Serious: Yes (Hospitalization, Other)
  Sender: FDA-Public Use
  Company Number: GB-TEVA-690899ACC

PATIENT
  Age: 82 Year
  Sex: Male

DRUGS (9)
  1. OMEPRAZOLE. [Suspect]
     Active Substance: OMEPRAZOLE
     Indication: DUODENITIS
     Dosage: 40 MILLIGRAM DAILY;
     Route: 048
     Dates: start: 20110601, end: 20160822
  2. ALLOPURINOL. [Concomitant]
     Active Substance: ALLOPURINOL
  3. DIGOXIN. [Concomitant]
     Active Substance: DIGOXIN
  4. PARACETAMOL [Concomitant]
     Active Substance: ACETAMINOPHEN
  5. BISOPROLOL [Concomitant]
     Active Substance: BISOPROLOL
  6. FERROUS FUMARATE [Concomitant]
     Active Substance: FERROUS FUMARATE
  7. FUROSEMIDE. [Concomitant]
     Active Substance: FUROSEMIDE
  8. WARFARIN [Concomitant]
     Active Substance: WARFARIN
  9. BISACODYL. [Concomitant]
     Active Substance: BISACODYL

REACTIONS (2)
  - Hypomagnesaemia [Recovering/Resolving]
  - Mobility decreased [Unknown]

NARRATIVE: CASE EVENT DATE: 20160822
